FAERS Safety Report 21847246 (Version 1)
Quarter: 2023Q1

REPORT INFORMATION
  Report Type: Spontaneous
  Country: US (occurrence: US)
  Receive Date: 20230111
  Receipt Date: 20230111
  Transmission Date: 20230417
  Serious: Yes (Death, Other)
  Sender: FDA-Public Use
  Company Number: US-009507513-2301USA002864

PATIENT
  Age: 83 Year
  Sex: Female

DRUGS (7)
  1. JANUVIA [Suspect]
     Active Substance: SITAGLIPTIN PHOSPHATE
     Route: 048
  2. LISINOPRIL [Suspect]
     Active Substance: LISINOPRIL
     Route: 048
  3. CARVEDILOL [Suspect]
     Active Substance: CARVEDILOL
  4. LINAGLIPTIN [Suspect]
     Active Substance: LINAGLIPTIN
  5. DULOXETINE [Suspect]
     Active Substance: DULOXETINE
  6. GABAPENTIN [Suspect]
     Active Substance: GABAPENTIN
  7. ATORVASTATIN [Suspect]
     Active Substance: ATORVASTATIN

REACTIONS (1)
  - Suspected suicide [Fatal]
